FAERS Safety Report 7555226-5 (Version None)
Quarter: 2011Q2

REPORT INFORMATION
  Report Type: 
  Country: None (occurrence: None)
  Receive Date: 20110617
  Receipt Date: 20100524
  Transmission Date: 20111010
  Serious: No
  Sender: FDA-Public Use
  Company Number: US-MYLANLABS-2010S1009237

PATIENT
  Age: 42 Year
  Sex: Female

DRUGS (2)
  1. METHOTREXATE [Suspect]
     Indication: RHEUMATOID ARTHRITIS
     Route: 048
     Dates: start: 20100521, end: 20100521
  2. FOLIC ACID [Concomitant]

REACTIONS (6)
  - WEIGHT DECREASED [None]
  - NAUSEA [None]
  - HOT FLUSH [None]
  - HEADACHE [None]
  - DIARRHOEA [None]
  - STOMATITIS [None]
